FAERS Safety Report 4626412-9 (Version None)
Quarter: 2005Q1

REPORT INFORMATION
  Report Type: 
  Country: None (occurrence: None)
  Receive Date: 20050330
  Receipt Date: 20050317
  Transmission Date: 20050727
  Serious: Yes (Life-Threatening, Hospitalization, Other)
  Sender: FDA-Public Use
  Company Number: 2005016163

PATIENT
  Age: 14 Year
  Sex: Female
  Weight: 60 kg

DRUGS (8)
  1. VFEND [Suspect]
     Indication: ANTIFUNGAL PROPHYLAXIS
     Dosage: 400 MG (200 MG, 2 IN 1 D), ORAL
     Route: 048
     Dates: start: 20040913, end: 20041117
  2. BENZALKONIUM CHLORIDE (BENZALKONIUM CHLORIDE) [Concomitant]
  3. NORETHISTERONE (NORETHISTERONE) [Concomitant]
  4. CASPOFUNGIN (CASPOFUNGIN) [Concomitant]
  5. CYCLOSPORINE [Concomitant]
  6. PREDNISONE [Concomitant]
  7. RANITIDINE [Concomitant]
  8. ACYCLOVIR [Concomitant]

REACTIONS (2)
  - GENERAL PHYSICAL HEALTH DETERIORATION [None]
  - PANCREATITIS [None]
